FAERS Safety Report 15578042 (Version 1)
Quarter: 2018Q4

REPORT INFORMATION
  Report Type: Spontaneous
  Country: US (occurrence: US)
  Receive Date: 20181029
  Receipt Date: 20181029
  Transmission Date: 20190205
  Serious: Yes (Life-Threatening, Hospitalization, Disabling)
  Sender: FDA-Public Use
  Company Number: None

PATIENT
  Age: 53 Year
  Sex: Female
  Weight: 72.57 kg

DRUGS (6)
  1. ZANTAC [Concomitant]
     Active Substance: RANITIDINE HYDROCHLORIDE
  2. ADVIL [Concomitant]
     Active Substance: IBUPROFEN
  3. PROBIOTICS [Concomitant]
     Active Substance: PROBIOTICS NOS
  4. TAMOXIFEN [Suspect]
     Active Substance: TAMOXIFEN
     Indication: PROPHYLAXIS
     Dosage: ?          QUANTITY:1 PILL;OTHER FREQUENCY:ONCE DAILY;?
     Route: 048
     Dates: start: 20080615, end: 20150915
  5. GLUCOSAMINE [Concomitant]
     Active Substance: GLUCOSAMINE
  6. ALLEGRA [Concomitant]
     Active Substance: FEXOFENADINE HYDROCHLORIDE

REACTIONS (2)
  - Menopausal symptoms [None]
  - Uterine cancer [None]

NARRATIVE: CASE EVENT DATE: 20150920
